FAERS Safety Report 20484117 (Version 16)
Quarter: 2022Q4

REPORT INFORMATION
  Report Type: Report from Study
  Country: US (occurrence: US)
  Receive Date: 20220217
  Receipt Date: 20221230
  Transmission Date: 20230112
  Serious: Yes (Hospitalization)
  Sender: FDA-Public Use
  Company Number: US-NOVARTISPH-NVSC2022US035046

PATIENT
  Age: 69 Year
  Sex: Female
  Weight: 98.413 kg

DRUGS (8)
  1. TREPROSTINIL [Suspect]
     Active Substance: TREPROSTINIL
     Indication: Pulmonary arterial hypertension
     Dosage: 24.5 NG/KG/MIN, CONT (STRENGTH: 5 MG/ML)
     Route: 058
     Dates: start: 20220214
  2. TREPROSTINIL [Suspect]
     Active Substance: TREPROSTINIL
     Dosage: 32.5 NG/KG/MIN, CONT (STRENGTH: 5 MG/ML)
     Route: 058
  3. TREPROSTINIL [Suspect]
     Active Substance: TREPROSTINIL
     Dosage: 51.8 NG/KG/MIN, CONT (STRENGTH: 10MG/ML)
     Route: 058
  4. TREPROSTINIL [Suspect]
     Active Substance: TREPROSTINIL
     Dosage: 51.8 NG/KG/MIN, CONT (STRENGTH: 10 MG/ML)
     Route: 058
  5. OPSUMIT [Suspect]
     Active Substance: MACITENTAN
     Indication: Product used for unknown indication
     Dosage: UNK
     Route: 065
  6. ADEMPAS [Concomitant]
     Active Substance: RIOCIGUAT
     Indication: Product used for unknown indication
     Dosage: UNK
     Route: 065
  7. ELIQUIS [Concomitant]
     Active Substance: APIXABAN
     Indication: Product used for unknown indication
     Dosage: UNK
     Route: 065
  8. DILTIAZEM [Concomitant]
     Active Substance: DILTIAZEM
     Indication: Product used for unknown indication
     Dosage: UNK
     Route: 065

REACTIONS (14)
  - Haemoptysis [Recovering/Resolving]
  - Infusion site pain [Recovered/Resolved]
  - Infusion site erythema [Recovering/Resolving]
  - Contusion [Unknown]
  - Nasal congestion [Unknown]
  - Arthropathy [Unknown]
  - Inhibitory drug interaction [Unknown]
  - Dermatitis contact [Recovered/Resolved]
  - Weight increased [Unknown]
  - Infusion site haemorrhage [Unknown]
  - Fall [Unknown]
  - Influenza [Unknown]
  - Infusion site vesicles [Unknown]
  - Infusion site infection [Recovered/Resolved]

NARRATIVE: CASE EVENT DATE: 20220731
